FAERS Safety Report 10280205 (Version 3)
Quarter: 2014Q3

REPORT INFORMATION
  Report Type: Spontaneous
  Country: PT (occurrence: PT)
  Receive Date: 20140707
  Receipt Date: 20140904
  Transmission Date: 20150326
  Serious: Yes (Life-Threatening, Hospitalization, Other)
  Sender: FDA-Public Use
  Company Number: PT-TEVA-491054ISR

PATIENT
  Age: 95 Year
  Sex: Male
  Weight: 59 kg

DRUGS (10)
  1. NIMODIPINE. [Concomitant]
     Active Substance: NIMODIPINE
  2. ACETYLSALICYLATE LYSINE [Concomitant]
     Active Substance: ASPIRIN DL-LYSINE
  3. DABIGATRAN [Concomitant]
     Active Substance: DABIGATRAN
     Dosage: 75 MG DE 12/12H
  4. DILBLOC [Concomitant]
     Indication: ATRIAL FIBRILLATION
     Route: 048
  5. INDAPAMIDE W/PERINDOPRIL [Concomitant]
     Active Substance: INDAPAMIDE\PERINDOPRIL
     Dosage: INDAPAMIDE 1.25MG/PERINDOPRIL 4MG
  6. CARVEDILOL RATIOPHARM [Suspect]
     Active Substance: CARVEDILOL
     Indication: ATRIAL FIBRILLATION
     Dosage: 12.5 MILLIGRAM DAILY;
     Route: 048
     Dates: start: 201405, end: 20140529
  7. IPRATROPIUM BROMIDE. [Concomitant]
     Active Substance: IPRATROPIUM BROMIDE
     Route: 055
  8. RIVASTIGMINE [Concomitant]
     Active Substance: RIVASTIGMINE
     Dosage: 4.6 MILLIGRAM DAILY; 4.6MG/24H
  9. SIMVASTATIN. [Concomitant]
     Active Substance: SIMVASTATIN
  10. FINASTERIDE. [Concomitant]
     Active Substance: FINASTERIDE

REACTIONS (5)
  - Product substitution issue [Unknown]
  - Heart rate increased [Recovered/Resolved]
  - Drug ineffective [Recovered/Resolved]
  - Product quality issue [Unknown]
  - Atrial fibrillation [Recovered/Resolved]

NARRATIVE: CASE EVENT DATE: 20140525
